FAERS Safety Report 9214406 (Version 8)
Quarter: 2014Q1

REPORT INFORMATION
  Report Type: Report from Study
  Country: CA (occurrence: CA)
  Receive Date: 20130405
  Receipt Date: 20140206
  Transmission Date: 20141002
  Serious: Yes (Hospitalization, Other)
  Sender: FDA-Public Use
  Company Number: CA-ROCHE-1197450

PATIENT
  Age: 69 Year
  Sex: Female
  Weight: 117 kg

DRUGS (13)
  1. ACTEMRA [Suspect]
     Indication: RHEUMATOID ARTHRITIS
     Route: 042
     Dates: start: 20121212, end: 20140111
  2. ACTEMRA [Suspect]
     Route: 042
     Dates: start: 20130306
  3. XENICAL [Suspect]
     Indication: WEIGHT INCREASED
     Route: 065
     Dates: end: 201301
  4. PREDNISONE [Suspect]
     Indication: PRODUCT USED FOR UNKNOWN INDICATION
     Route: 065
  5. FOLIC ACID [Concomitant]
  6. CRESTOR [Concomitant]
  7. ACTONEL [Concomitant]
  8. ELAVIL (CANADA) [Concomitant]
  9. CIPRALEX [Concomitant]
  10. DILTIAZEM [Concomitant]
  11. HYDROMORPH CONTIN [Concomitant]
  12. VITAMIN E [Concomitant]
  13. METHOTREXATE [Concomitant]

REACTIONS (16)
  - Fall [Unknown]
  - Pelvic fracture [Unknown]
  - Fractured sacrum [Unknown]
  - Lumbar vertebral fracture [Unknown]
  - Drug ineffective [Unknown]
  - Pain [Not Recovered/Not Resolved]
  - Joint injury [Not Recovered/Not Resolved]
  - Spinal fracture [Not Recovered/Not Resolved]
  - Weight increased [Not Recovered/Not Resolved]
  - Arthralgia [Not Recovered/Not Resolved]
  - Hypotension [Not Recovered/Not Resolved]
  - Skin papilloma [Recovered/Resolved]
  - Incision site infection [Recovering/Resolving]
  - Body height decreased [Unknown]
  - Drug effect decreased [Unknown]
  - Pain [Unknown]
